FAERS Safety Report 7068288-9 (Version None)
Quarter: 2010Q4

REPORT INFORMATION
  Report Type: 
  Country: None (occurrence: None)
  Receive Date: 20101027
  Receipt Date: 20101027
  Transmission Date: 20110411
  Serious: Yes (Other)
  Sender: FDA-Public Use
  Company Number: None

PATIENT
  Age: 31 Year
  Sex: Female
  Weight: 62.1428 kg

DRUGS (1)
  1. LARIAM [Suspect]
     Indication: MALARIA PROPHYLAXIS
     Dosage: 1 PILL ONCE PER WEEK PO
     Route: 048
     Dates: start: 20101020, end: 20101020

REACTIONS (8)
  - ABNORMAL DREAMS [None]
  - HALLUCINATION [None]
  - HEART RATE IRREGULAR [None]
  - HYPERACUSIS [None]
  - NIGHTMARE [None]
  - PRODUCT QUALITY ISSUE [None]
  - RESTLESSNESS [None]
  - TREMOR [None]
